FAERS Safety Report 20828749 (Version 4)
Quarter: 2023Q2

REPORT INFORMATION
  Report Type: Spontaneous
  Country: US (occurrence: US)
  Receive Date: 20220513
  Receipt Date: 20230524
  Transmission Date: 20230722
  Serious: No
  Sender: FDA-Public Use
  Company Number: US-SA-SAC20220511000233

PATIENT
  Age: 38 Year
  Sex: Male

DRUGS (1)
  1. DUPIXENT [Suspect]
     Active Substance: DUPILUMAB
     Indication: Dermatitis atopic
     Dosage: 300 MG, QOW
     Route: 058
     Dates: start: 202204

REACTIONS (10)
  - Nasal dryness [Unknown]
  - Paranasal sinus hyposecretion [Unknown]
  - Condition aggravated [Unknown]
  - Lymphadenopathy [Unknown]
  - Ocular hyperaemia [Unknown]
  - Injection site pruritus [Recovered/Resolved]
  - Dry eye [Unknown]
  - Injection site reaction [Recovered/Resolved]
  - Oral herpes [Unknown]
  - Eye pruritus [Unknown]

NARRATIVE: CASE EVENT DATE: 20220101
